FAERS Safety Report 25008466 (Version 1)
Quarter: 2025Q1

REPORT INFORMATION
  Report Type: Spontaneous
  Country: US (occurrence: None)
  Receive Date: 20250225
  Receipt Date: 20250225
  Transmission Date: 20250409
  Serious: Yes (Hospitalization)
  Sender: FDA-CTU
  Company Number: None

PATIENT
  Age: 73 Year
  Sex: Male
  Weight: 123.3 kg

DRUGS (7)
  1. FLUOROURACIL [Suspect]
     Active Substance: FLUOROURACIL
     Dates: start: 20240926, end: 20250206
  2. Itinotecan [Concomitant]
  3. LEUCOVORIN CALCIUM [Concomitant]
     Active Substance: LEUCOVORIN CALCIUM
  4. OXALIPLATIN [Concomitant]
     Active Substance: OXALIPLATIN
  5. BENADRYL [Concomitant]
     Active Substance: DIPHENHYDRAMINE HYDROCHLORIDE
  6. FAMOTIDINE [Concomitant]
     Active Substance: FAMOTIDINE
  7. MEPERIDINE [Concomitant]
     Active Substance: MEPERIDINE

REACTIONS (10)
  - Fall [None]
  - Chills [None]
  - Abdominal pain [None]
  - Hypotension [None]
  - Dysphonia [None]
  - Rash [None]
  - Neutropenia [None]
  - Pneumonia [None]
  - Pulmonary embolism [None]
  - Drug intolerance [None]

NARRATIVE: CASE EVENT DATE: 20250220
